FAERS Safety Report 6102620-5 (Version None)
Quarter: 2009Q1

REPORT INFORMATION
  Report Type: 
  Country: None (occurrence: None)
  Receive Date: 20090304
  Receipt Date: 20081017
  Transmission Date: 20090719
  Serious: No
  Sender: FDA-Public Use
  Company Number: A0752392A

PATIENT
  Age: 43 Year
  Sex: Female

DRUGS (2)
  1. REQUIP [Suspect]
     Indication: RESTLESS LEGS SYNDROME
     Route: 048
     Dates: start: 20080101
  2. NO CONCURRENT MEDICATION [Concomitant]

REACTIONS (5)
  - DRUG INEFFECTIVE [None]
  - HEADACHE [None]
  - INFLUENZA [None]
  - NAUSEA [None]
  - VOMITING [None]
